FAERS Safety Report 4698973-5 (Version None)
Quarter: 2005Q2

REPORT INFORMATION
  Report Type: 
  Country: None (occurrence: None)
  Receive Date: 20050622
  Receipt Date: 20050622
  Transmission Date: 20051028
  Serious: No
  Sender: FDA-Public Use
  Company Number: None

PATIENT
  Sex: Male
  Weight: 115.2136 kg

DRUGS (3)
  1. GLEEVEC [Suspect]
     Dates: start: 20040720, end: 20040909
  2. MULTI-VITAMINS [Concomitant]
  3. ADVIL [Concomitant]

REACTIONS (4)
  - CRANIAL NEUROPATHY [None]
  - EYELID PTOSIS [None]
  - PERINEPHRIC ABSCESS [None]
  - PYREXIA [None]
